FAERS Safety Report 6618161-2 (Version None)
Quarter: 2010Q1

REPORT INFORMATION
  Report Type: 
  Country: None (occurrence: None)
  Receive Date: 20100308
  Receipt Date: 20100226
  Transmission Date: 20100710
  Serious: Yes (Other)
  Sender: FDA-Public Use
  Company Number: BR-ROCHE-688145

PATIENT
  Sex: Male
  Weight: 80 kg

DRUGS (1)
  1. ROACUTAN [Suspect]
     Indication: ACNE
     Route: 065
     Dates: start: 20080101, end: 20080101

REACTIONS (3)
  - SCAR [None]
  - SKIN NECROSIS [None]
  - SKIN ULCER [None]
